FAERS Safety Report 11158850 (Version 1)
Quarter: 2015Q2

REPORT INFORMATION
  Report Type: Spontaneous
  Country: US (occurrence: None)
  Receive Date: 20150601
  Receipt Date: 20150601
  Transmission Date: 20150821
  Serious: No
  Sender: FDA-Public Use
  Company Number: None

PATIENT
  Age: 35 Year
  Sex: Female
  Weight: 83.92 kg

DRUGS (4)
  1. BIAXIN [Suspect]
     Active Substance: CLARITHROMYCIN
     Indication: PRODUCTIVE COUGH
     Dosage: 1 PILL TWICE DAILY
     Route: 048
     Dates: start: 20150513, end: 20150517
  2. BIO KULT PROBIOTIC [Concomitant]
  3. BIAXIN [Suspect]
     Active Substance: CLARITHROMYCIN
     Indication: COUGH
     Dosage: 1 PILL TWICE DAILY
     Route: 048
     Dates: start: 20150513, end: 20150517
  4. BIAXIN [Suspect]
     Active Substance: CLARITHROMYCIN
     Indication: PULMONARY CONGESTION
     Dosage: 1 PILL TWICE DAILY
     Route: 048
     Dates: start: 20150513, end: 20150517

REACTIONS (12)
  - Fatigue [None]
  - Dry eye [None]
  - Pain in extremity [None]
  - Heart rate increased [None]
  - Dysgeusia [None]
  - Vulvovaginal dryness [None]
  - Heart rate irregular [None]
  - Asthenia [None]
  - Chromaturia [None]
  - Back pain [None]
  - Rash [None]
  - Vaginal mucosal blistering [None]

NARRATIVE: CASE EVENT DATE: 20150513
